FAERS Safety Report 4457072-8 (Version None)
Quarter: 2004Q3

REPORT INFORMATION
  Report Type: 
  Country: None (occurrence: None)
  Receive Date: 20040921
  Receipt Date: 20040913
  Transmission Date: 20050211
  Serious: Yes (Death)
  Sender: FDA-Public Use
  Company Number: US-JNJFOC-20040903583

PATIENT
  Age: 48 Year
  Sex: Female

DRUGS (10)
  1. CYCLOBENZAPRINE HYDROCHLORIDE [Suspect]
     Indication: SUICIDE ATTEMPT
     Dosage: ORAL
     Route: 048
  2. DESIPRAMINE HCL [Suspect]
     Indication: SUICIDE ATTEMPT
     Dosage: ORAL
     Route: 048
  3. THEOPHYLLINE [Suspect]
     Indication: SUICIDE ATTEMPT
     Dosage: ORAL
     Route: 048
  4. FUROSEMIDE [Concomitant]
     Indication: SUICIDE ATTEMPT
     Dosage: ORAL
     Route: 048
  5. ASPIRIN/PENTAZOCINE (TALWIN COMPOUND) [Suspect]
     Indication: SUICIDE ATTEMPT
     Dosage: ORAL
     Route: 048
  6. NAPROXEN [Concomitant]
  7. SUCRALFATE [Concomitant]
  8. ZOLPIDEM TARTRATE [Concomitant]
  9. OMEPRAZOLE (OMERPAZOLE) [Concomitant]
  10. ESTROGENS/MEDROXYPROGESTERONE (ESTROGEN W;MEDROXYPROGESTERON) [Concomitant]

REACTIONS (12)
  - BLOOD CREATINE INCREASED [None]
  - BLOOD CREATINE PHOSPHOKINASE INCREASED [None]
  - BLOOD GLUCOSE DECREASED [None]
  - BLOOD UREA INCREASED [None]
  - CARDIAC OUTPUT DECREASED [None]
  - COMA [None]
  - DYSKINESIA [None]
  - HEART RATE INCREASED [None]
  - LUNG INFILTRATION [None]
  - METABOLIC ACIDOSIS [None]
  - TACHYPNOEA [None]
  - VASCULAR RESISTANCE SYSTEMIC DECREASED [None]
